FAERS Safety Report 8624260-6 (Version None)
Quarter: 2012Q3

REPORT INFORMATION
  Report Type: 
  Country: None (occurrence: None)
  Receive Date: 20120827
  Receipt Date: 20120817
  Transmission Date: 20120928
  Serious: Yes (Other)
  Sender: FDA-Public Use
  Company Number: IE-JNJFOC-20120807233

PATIENT
  Age: 31 Year
  Sex: Male

DRUGS (5)
  1. PALIPERIDONE [Suspect]
     Indication: SCHIZOPHRENIA
     Route: 030
     Dates: start: 20120727
  2. RISPERIDONE [Concomitant]
     Route: 048
  3. PALIPERIDONE [Suspect]
     Route: 030
     Dates: start: 20120720
  4. RISPERIDONE [Concomitant]
     Route: 048
  5. BENZODIAZEPINE NOS [Concomitant]
     Route: 065

REACTIONS (5)
  - PARKINSONISM [None]
  - CONFUSIONAL STATE [None]
  - HALLUCINATION [None]
  - DRUG INEFFECTIVE [None]
  - CONDITION AGGRAVATED [None]
